FAERS Safety Report 23294225 (Version 1)
Quarter: 2023Q4

REPORT INFORMATION
  Report Type: Spontaneous
  Country: US (occurrence: None)
  Receive Date: 20231213
  Receipt Date: 20231213
  Transmission Date: 20240109
  Serious: Yes (Hospitalization)
  Sender: FDA-Public Use
  Company Number: None

PATIENT
  Sex: Female

DRUGS (11)
  1. PULMOZYME [Suspect]
     Active Substance: DORNASE ALFA
     Indication: Cystic fibrosis
     Dosage: OTHER QUANTITY : 2.5 MG/2.5ML;?FREQUENCY : DAILY;?OTHER ROUTE : VIA NEBULIZER;?
     Route: 050
  2. PULMOZYME [Suspect]
     Active Substance: DORNASE ALFA
     Dosage: FREQUENCY : DAILY;?OTHER ROUTE : VIA NEBULIZER;?
     Route: 050
  3. ALVESCO AER [Concomitant]
  4. CETIRIZINE [Concomitant]
  5. COMPLETE FORM [Concomitant]
  6. FLUTICASONE [Concomitant]
  7. MVW COMPLETE [Concomitant]
  8. PERTZYE [Concomitant]
  9. PROAIR HFA [Concomitant]
     Active Substance: ALBUTEROL SULFATE
  10. SODIUM CHLOR [Concomitant]
  11. TRIKAFTA [Concomitant]

REACTIONS (1)
  - Bronchoscopy [None]
